FAERS Safety Report 12284695 (Version 4)
Quarter: 2016Q4

REPORT INFORMATION
  Report Type: Spontaneous
  Country: US (occurrence: US)
  Receive Date: 20160420
  Receipt Date: 20161012
  Transmission Date: 20170207
  Serious: No
  Sender: FDA-Public Use
  Company Number: US-TEVA-645963USA

PATIENT
  Age: 54 Year
  Sex: Female

DRUGS (1)
  1. ZECUITY [Suspect]
     Active Substance: SUMATRIPTAN SUCCINATE
     Dosage: 6.5MG/4 HOURS
     Route: 062
     Dates: start: 201603, end: 201603

REACTIONS (7)
  - Drug effect incomplete [Unknown]
  - Application site pruritus [Recovered/Resolved]
  - Application site erythema [Recovered/Resolved]
  - Application site inflammation [Recovered/Resolved]
  - Application site mass [Recovered/Resolved]
  - Application site irritation [Recovered/Resolved]
  - Application site pain [Recovered/Resolved]

NARRATIVE: CASE EVENT DATE: 201603
